FAERS Safety Report 6159357-6 (Version None)
Quarter: 2009Q2

REPORT INFORMATION
  Report Type: 
  Country: None (occurrence: None)
  Receive Date: 20090417
  Receipt Date: 20090410
  Transmission Date: 20091009
  Serious: Yes (Other)
  Sender: FDA-Public Use
  Company Number: FR-GILEAD-2009-0021443

PATIENT
  Sex: Female

DRUGS (5)
  1. TRUVADA [Suspect]
     Indication: HIV INFECTION
     Route: 048
     Dates: start: 20081114, end: 20081128
  2. SUSTIVA [Suspect]
     Indication: HIV INFECTION
     Route: 048
     Dates: start: 20081114, end: 20081128
  3. REYATAZ [Concomitant]
     Dates: start: 20081027
  4. NORVIR [Concomitant]
     Dates: start: 20081027
  5. ABACAVIR SULFATE/LAMIVUDINE [Concomitant]
     Dates: start: 20081027

REACTIONS (3)
  - APHTHOUS STOMATITIS [None]
  - PRURITUS [None]
  - RASH PAPULAR [None]
